FAERS Safety Report 4645727-1 (Version None)
Quarter: 2005Q2

REPORT INFORMATION
  Report Type: 
  Country: None (occurrence: None)
  Receive Date: 20050425
  Receipt Date: 20050412
  Transmission Date: 20051028
  Serious: Yes (Death)
  Sender: FDA-Public Use
  Company Number: 2005058477

PATIENT
  Age: 65 Year
  Sex: Female

DRUGS (2)
  1. BEXTRA [Suspect]
     Indication: MUSCULOSKELETAL PAIN
     Dosage: 40 MG (40 MG, 1 IN 1 D), ORAL
     Route: 048
     Dates: start: 20050401, end: 20050403
  2. ALL OTHER THERAPEUTIC PRODUCTS (ALL OTHER THERAPEUTIC PRODUCTS) [Concomitant]

REACTIONS (8)
  - ABDOMINAL PAIN UPPER [None]
  - ARRHYTHMIA [None]
  - ATRIAL FIBRILLATION [None]
  - DIARRHOEA [None]
  - HYPERHIDROSIS [None]
  - MYOCARDIAL INFARCTION [None]
  - NAUSEA [None]
  - STOMACH DISCOMFORT [None]
